FAERS Safety Report 8133010-1 (Version None)
Quarter: 2012Q1

REPORT INFORMATION
  Report Type: 
  Country: None (occurrence: None)
  Receive Date: 20120213
  Receipt Date: 20120206
  Transmission Date: 20120608
  Serious: Yes (Other)
  Sender: FDA-Public Use
  Company Number: PHHY2010JP51545

PATIENT
  Sex: Male

DRUGS (13)
  1. OLMESARTAN MEDOXOMIL [Concomitant]
     Indication: PROPHYLAXIS
     Dosage: 20 MG, UNK
     Route: 048
  2. LOCHOLEST [Concomitant]
     Indication: HYPERLIPIDAEMIA
     Dosage: 30 MG, UNK
     Route: 048
     Dates: start: 20091204
  3. NIFEDIPINE [Concomitant]
     Indication: HYPERTENSION
     Dosage: 40 MG, UNK
     Route: 048
     Dates: start: 20091204
  4. FAMOTIDINE [Concomitant]
     Indication: PROPHYLAXIS
     Dosage: 40 MG, UNK
     Route: 048
  5. OLMESARTAN MEDOXOMIL [Concomitant]
     Indication: HYPERTENSION
     Dosage: 20 MG, UNK
     Route: 048
     Dates: start: 20091204
  6. FLIVAS [Concomitant]
     Dosage: 50 MG, UNK
     Route: 048
     Dates: start: 20091204
  7. AFTACH [Concomitant]
     Indication: PROPHYLAXIS
  8. AFINITOR [Suspect]
     Indication: METASTATIC RENAL CELL CARCINOMA
     Dosage: 10 MG, DAILY
     Route: 048
     Dates: start: 20100626, end: 20100710
  9. SORAFENIB TOSILATE [Concomitant]
     Dosage: 800 MG, UNK
     Route: 048
     Dates: start: 20091103, end: 20100624
  10. DESPA KOWA [Concomitant]
     Indication: PROPHYLAXIS
  11. AZUNOL [Concomitant]
     Indication: PROPHYLAXIS
  12. AFINITOR [Suspect]
     Dosage: 10 MG, DAILY
     Route: 048
     Dates: start: 20100717
  13. ALLOPURINOL [Concomitant]
     Indication: PROPHYLAXIS
     Dosage: 40 MG, UNK
     Route: 048
     Dates: start: 20091204

REACTIONS (2)
  - HEPATIC FUNCTION ABNORMAL [None]
  - GAMMA-GLUTAMYLTRANSFERASE INCREASED [None]
